FAERS Safety Report 6807997-0 (Version None)
Quarter: 2010Q2

REPORT INFORMATION
  Report Type: 
  Country: None (occurrence: None)
  Receive Date: 20100629
  Receipt Date: 20090310
  Transmission Date: 20101027
  Serious: No
  Sender: FDA-Public Use
  Company Number: US-PFIZER INC-2009181998

PATIENT
  Sex: Female

DRUGS (2)
  1. XANAX [Suspect]
  2. PREDNISONE [Suspect]
     Indication: COLITIS
     Dosage: UNK

REACTIONS (3)
  - COGNITIVE DISORDER [None]
  - DYSPHEMIA [None]
  - TONGUE DISORDER [None]
